FAERS Safety Report 20016619 (Version 1)
Quarter: 2021Q4

REPORT INFORMATION
  Report Type: Spontaneous
  Country: US (occurrence: None)
  Receive Date: 20211104
  Receipt Date: 20211104
  Transmission Date: 20220303
  Serious: Yes (Other)
  Sender: FDA-Public Use
  Company Number: None

PATIENT
  Age: 76 Year
  Sex: Female
  Weight: 45.9 kg

DRUGS (6)
  1. ERLOTINIB [Suspect]
     Active Substance: ERLOTINIB
     Indication: Lung carcinoma cell type unspecified stage 0
     Dosage: OTHER FREQUENCY : ONCE A WEEK;?
     Route: 048
     Dates: start: 20210603
  2. MEMANTINE [Concomitant]
     Active Substance: MEMANTINE
  3. DEXAMETHASONE [Concomitant]
     Active Substance: DEXAMETHASONE
  4. LOSARTAN [Concomitant]
     Active Substance: LOSARTAN
  5. METOPROLOL [Concomitant]
     Active Substance: METOPROLOL
  6. SPIRONOLACTONE [Concomitant]
     Active Substance: SPIRONOLACTONE

REACTIONS (1)
  - Diarrhoea [None]

NARRATIVE: CASE EVENT DATE: 20211104
